FAERS Safety Report 19956817 (Version 1)
Quarter: 2021Q4

REPORT INFORMATION
  Report Type: Spontaneous
  Country: PT (occurrence: PT)
  Receive Date: 20211014
  Receipt Date: 20211014
  Transmission Date: 20220303
  Serious: Yes (Other)
  Sender: FDA-Public Use
  Company Number: PT-GLAXOSMITHKLINE-PTCH2021GSK071693

PATIENT
  Age: 32 Year
  Sex: Female

DRUGS (5)
  1. CLEMASTINE FUMARATE [Suspect]
     Active Substance: CLEMASTINE FUMARATE
     Indication: Anaphylactic reaction
     Dosage: UNK
  2. AMPICILLIN [Suspect]
     Active Substance: AMPICILLIN
     Indication: Beta haemolytic streptococcal infection
     Dosage: UNK
  3. ALBUTEROL [Suspect]
     Active Substance: ALBUTEROL
     Indication: Dyspnoea
     Dosage: UNK
  4. ALBUTEROL [Suspect]
     Active Substance: ALBUTEROL
     Indication: Wheezing
  5. HYDROCORTISONE [Suspect]
     Active Substance: HYDROCORTISONE
     Indication: Anaphylactic reaction
     Dosage: UNK

REACTIONS (10)
  - Anaphylactic reaction [Unknown]
  - Dyspnoea [Unknown]
  - Swollen tongue [Unknown]
  - Hypotension [Unknown]
  - Tachycardia [Unknown]
  - Rash [Unknown]
  - Wheezing [Unknown]
  - Haemodynamic instability [Unknown]
  - Live birth [Unknown]
  - Exposure during pregnancy [Unknown]
